FAERS Safety Report 12623499 (Version 2)
Quarter: 2017Q2

REPORT INFORMATION
  Report Type: Spontaneous
  Country: US (occurrence: US)
  Receive Date: 20160804
  Receipt Date: 20170518
  Transmission Date: 20170830
  Serious: Yes (Other)
  Sender: FDA-Public Use
  Company Number: US-ASTRAZENECA-2016SE82085

PATIENT
  Age: 887 Month
  Sex: Male
  Weight: 108.9 kg

DRUGS (5)
  1. METOPROLOL TARTRATE. [Suspect]
     Active Substance: METOPROLOL TARTRATE
     Indication: HEART RATE INCREASED
     Dosage: 25.0MG UNKNOWN
     Route: 048
  2. BRILINTA [Suspect]
     Active Substance: TICAGRELOR
     Indication: STENT PLACEMENT
     Route: 048
     Dates: start: 201605
  3. ASPIRIN. [Concomitant]
     Active Substance: ASPIRIN
     Indication: ANAPHYLAXIS TREATMENT
     Route: 048
     Dates: start: 201605
  4. METOPROLOL TARTRATE. [Suspect]
     Active Substance: METOPROLOL TARTRATE
     Indication: CARDIAC DISORDER
     Dosage: 25.0MG UNKNOWN
     Route: 048
  5. ATORVASTATIN [Concomitant]
     Active Substance: ATORVASTATIN
     Indication: BLOOD CHOLESTEROL ABNORMAL
     Route: 048
     Dates: start: 201605

REACTIONS (6)
  - Limb injury [Unknown]
  - Dyspnoea exertional [Unknown]
  - Hyperventilation [Unknown]
  - Dental caries [Unknown]
  - Asphyxia [Unknown]
  - Haemorrhage [Unknown]

NARRATIVE: CASE EVENT DATE: 201605
